FAERS Safety Report 22052265 (Version 1)
Quarter: 2023Q1

REPORT INFORMATION
  Report Type: Spontaneous
  Country: IN (occurrence: IN)
  Receive Date: 20230302
  Receipt Date: 20230302
  Transmission Date: 20230417
  Serious: Yes (Hospitalization, Other)
  Sender: FDA-Public Use
  Company Number: IN-Indoco-000391

PATIENT
  Age: 35 Year
  Sex: Male

DRUGS (1)
  1. OLANZAPINE [Suspect]
     Active Substance: OLANZAPINE
     Indication: Hallucination
     Dosage: DOSE WAS TITRATED TO 10 MG PER DAY OVER ONE WEEK
     Route: 048

REACTIONS (1)
  - Diabetes insipidus [Recovered/Resolved]
